FAERS Safety Report 5184647-3 (Version None)
Quarter: 2006Q4

REPORT INFORMATION
  Report Type: 
  Country: None (occurrence: None)
  Receive Date: 20061220
  Receipt Date: 20060322
  Transmission Date: 20070319
  Serious: No
  Sender: FDA-Public Use
  Company Number: US-GLAXOSMITHKLINE-A0598558A

PATIENT
  Age: 55 Year
  Sex: Male

DRUGS (3)
  1. NICODERM CQ [Suspect]
     Dates: start: 20060313, end: 20060318
  2. NICODERM CQ [Suspect]
     Dates: start: 20060116, end: 20060226
  3. NICODERM CQ [Suspect]
     Dates: start: 20060227, end: 20060312

REACTIONS (1)
  - APPLICATION SITE ERYTHEMA [None]
